FAERS Safety Report 16011136 (Version 5)
Quarter: 2020Q1

REPORT INFORMATION
  Report Type: Spontaneous
  Country: US (occurrence: US)
  Receive Date: 20190227
  Receipt Date: 20200218
  Transmission Date: 20200409
  Serious: Yes (Other)
  Sender: FDA-Public Use
  Company Number: US-GLAXOSMITHKLINE-US2019GSK035187

PATIENT

DRUGS (1)
  1. PREVACID [Suspect]
     Active Substance: LANSOPRAZOLE
     Indication: PRODUCT USED FOR UNKNOWN INDICATION
     Dosage: UNK
     Route: 065
     Dates: start: 2010, end: 2015

REACTIONS (6)
  - End stage renal disease [Not Recovered/Not Resolved]
  - Hypertensive nephropathy [Unknown]
  - Nephrosclerosis [Unknown]
  - Microalbuminuria [Unknown]
  - Chronic kidney disease [Not Recovered/Not Resolved]
  - Proteinuria [Unknown]
